FAERS Safety Report 4557825-1 (Version None)
Quarter: 2005Q1

REPORT INFORMATION
  Report Type: 
  Country: None (occurrence: None)
  Receive Date: 20050118
  Receipt Date: 20050113
  Transmission Date: 20050727
  Serious: Yes (Death)
  Sender: FDA-Public Use
  Company Number: 6012573

PATIENT
  Age: 75 Year
  Sex: Male

DRUGS (6)
  1. BISOPROLOL FUMARATE [Suspect]
     Indication: CARDIAC FAILURE CONGESTIVE
     Dosage: 10 MG
     Route: 048
     Dates: start: 20031117
  2. ENALAPRIL MALEATE [Suspect]
     Indication: CARDIAC FAILURE CONGESTIVE
     Dosage: 10 MG
     Route: 048
     Dates: start: 20040524
  3. FUROSEMIDE [Concomitant]
  4. ASS                          (ACETYLSALCYLIC ACID) [Concomitant]
  5. NITRATES [Concomitant]
  6. DIGITOXIN TAB [Concomitant]
     Route: 048

REACTIONS (1)
  - SUDDEN DEATH [None]
